FAERS Safety Report 9820574 (Version 1)
Quarter: 2013Q4

REPORT INFORMATION
  Report Type: Spontaneous
  Country: US (occurrence: None)
  Receive Date: 20131028
  Receipt Date: 20131028
  Transmission Date: 20140711
  Serious: Yes (Other)
  Sender: FDA-Public Use
  Company Number: 2013US001727

PATIENT
  Age: 66 Year
  Sex: Female

DRUGS (9)
  1. ICLUSIG [Suspect]
     Indication: ACUTE LYMPHOCYTIC LEUKAEMIA
     Route: 048
     Dates: start: 20130521
  2. LISINOPRIL (LISINOPRIL) [Concomitant]
  3. HYDROCODONE (HYDROCODONE) [Concomitant]
  4. STOOL SOFTNER (DUCOSATE SODIUM) [Concomitant]
  5. CARVEDILOL (CARVEDILOL) [Concomitant]
  6. GABAPENTIN (GABAPENTIN) [Concomitant]
  7. INSULIN(INSULIN) [Concomitant]
  8. LAXATIVES [Concomitant]
  9. FUROSEMIDE (FUROSEMIDE) [Concomitant]

REACTIONS (4)
  - Haemoptysis [None]
  - Rash [None]
  - Cough [None]
  - Fatigue [None]
